FAERS Safety Report 9529551 (Version 1)
Quarter: 2013Q2

REPORT INFORMATION
  Report Type: Spontaneous
  Country: US (occurrence: None)
  Receive Date: 20130402
  Receipt Date: 20130402
  Transmission Date: 20140414
  Serious: Yes (Other)
  Sender: FDA-Public Use
  Company Number: RB-49807-2013

PATIENT
  Sex: 0

DRUGS (1)
  1. SUBOXONE 8 MG [Suspect]
     Indication: PRODUCT USED FOR UNKNOWN INDICATION
     Dosage: 16 MG, SUBOXONE FILM; DOSAGE DECREASED

REACTIONS (1)
  - Oedema peripheral [None]
